FAERS Safety Report 6360922-1 (Version None)
Quarter: 2009Q3

REPORT INFORMATION
  Report Type: 
  Country: None (occurrence: None)
  Receive Date: 20090918
  Receipt Date: 20090908
  Transmission Date: 20100115
  Serious: Yes (Other)
  Sender: FDA-Public Use
  Company Number: PHHY2009CO12444

PATIENT
  Age: 17 Year
  Sex: Female

DRUGS (3)
  1. XOLAIR [Interacting]
     Indication: ASTHMA
     Dosage: UNK
     Route: 058
     Dates: end: 20090320
  2. XOLAIR [Interacting]
     Dosage: UNK
     Route: 058
  3. DICLOFENAC SODIUM [Suspect]

REACTIONS (3)
  - FOOT FRACTURE [None]
  - SERUM SICKNESS [None]
  - URTICARIA [None]
